FAERS Safety Report 18134476 (Version 2)
Quarter: 2020Q4

REPORT INFORMATION
  Report Type: Spontaneous
  Country: US (occurrence: US)
  Receive Date: 20200811
  Receipt Date: 20201002
  Transmission Date: 20210113
  Serious: Yes (Other)
  Sender: FDA-Public Use
  Company Number: US-AMNEAL PHARMACEUTICALS-2020-AMRX-02299

PATIENT
  Age: 23 Year
  Sex: Female

DRUGS (1)
  1. ISOTRETINOIN. [Suspect]
     Active Substance: ISOTRETINOIN
     Indication: ACNE CYSTIC
     Dosage: 30 MILLIGRAM, BID
     Route: 065
     Dates: start: 20200423, end: 20200708

REACTIONS (2)
  - Exposure during pregnancy [Unknown]
  - Lyme disease [Recovered/Resolved]

NARRATIVE: CASE EVENT DATE: 2020
